FAERS Safety Report 9385403 (Version 1)
Quarter: 2013Q3

REPORT INFORMATION
  Report Type: Spontaneous
  Country: FR (occurrence: None)
  Receive Date: 20130701
  Receipt Date: 20130701
  Transmission Date: 20140515
  Serious: Yes (Other)
  Sender: FDA-Public Use
  Company Number: 1772260

PATIENT
  Age: 55 Year
  Sex: Male

DRUGS (7)
  1. (CARBOPLATIN) [Suspect]
     Indication: LUNG ADENOCARCINOMA
     Route: 041
     Dates: start: 20120802, end: 20130211
  2. (DOCETAXEL) [Concomitant]
  3. (GEMCITABINE) [Concomitant]
  4. (KYTRIL) [Concomitant]
  5. (SOLUMEDROL) [Concomitant]
  6. (CORTANCYL) [Concomitant]
  7. (SOLUPRED/00016201/) [Concomitant]

REACTIONS (3)
  - Erythema [None]
  - Urticaria [None]
  - Laryngeal oedema [None]
